FAERS Safety Report 22205483 (Version 4)
Quarter: 2024Q2

REPORT INFORMATION
  Report Type: Other
  Country: US (occurrence: None)
  Receive Date: 20230413
  Receipt Date: 20240430
  Transmission Date: 20240715
  Serious: Yes (Life-Threatening)
  Sender: FDA-Public Use
  Company Number: US-ROCHE-3326386

PATIENT
  Age: 71 Year
  Sex: Male
  Weight: 77.18 kg

DRUGS (1)
  1. GAZYVA [Suspect]
     Active Substance: OBINUTUZUMAB
     Indication: Non-Hodgkin^s lymphoma
     Dosage: NO
     Route: 042
     Dates: start: 20230221, end: 20230221

REACTIONS (10)
  - Pallor [Recovered/Resolved]
  - Eye movement disorder [Recovered/Resolved]
  - Therapy non-responder [Unknown]
  - Nasopharyngitis [Recovered/Resolved]
  - Tremor [Recovered/Resolved]
  - Hyperhidrosis [Recovered/Resolved]
  - Snoring [Recovered/Resolved]
  - Splenitis [Unknown]
  - Eye disorder [Recovered/Resolved]
  - Off label use [Unknown]

NARRATIVE: CASE EVENT DATE: 20230221
